FAERS Safety Report 7620435-3 (Version None)
Quarter: 2011Q3

REPORT INFORMATION
  Report Type: 
  Country: None (occurrence: None)
  Receive Date: 20110719
  Receipt Date: 20110718
  Transmission Date: 20111222
  Serious: Yes (Other)
  Sender: FDA-Public Use
  Company Number: CN-JNJFOC-20110601087

PATIENT
  Age: 30 Year
  Sex: Female

DRUGS (3)
  1. TOPAMAX [Suspect]
     Indication: EPILEPSY
     Route: 048
     Dates: start: 20070601
  2. TOPAMAX [Suspect]
     Dosage: 25 MG TABLETS
     Route: 048
  3. TOPAMAX [Suspect]
     Route: 048
     Dates: start: 20100101

REACTIONS (2)
  - TREATMENT NONCOMPLIANCE [None]
  - PSORIASIS [None]
